FAERS Safety Report 4619200-0 (Version None)
Quarter: 2005Q1

REPORT INFORMATION
  Report Type: 
  Country: None (occurrence: None)
  Receive Date: 20050325
  Receipt Date: 20050317
  Transmission Date: 20050727
  Serious: Yes (Death, Life-Threatening, Other)
  Sender: FDA-Public Use
  Company Number: GB-JNJFOC-20050101422

PATIENT
  Sex: Female
  Weight: 64 kg

DRUGS (8)
  1. REMICADE [Suspect]
     Indication: RHEUMATOID ARTHRITIS
     Route: 042
  2. METHOTREXATE [Concomitant]
  3. PREDNISOLONE [Concomitant]
  4. LOSEC [Concomitant]
  5. FOLIC ACID [Concomitant]
  6. TEMAZEPAM [Concomitant]
  7. MORPHINE [Concomitant]
  8. MOBIC [Concomitant]

REACTIONS (1)
  - CARDIAC FAILURE CONGESTIVE [None]
